FAERS Safety Report 7973067-1 (Version None)
Quarter: 2011Q4

REPORT INFORMATION
  Report Type: 
  Country: None (occurrence: None)
  Receive Date: 20111213
  Receipt Date: 20111130
  Transmission Date: 20120403
  Serious: Yes (Hospitalization)
  Sender: FDA-Public Use
  Company Number: JP-BAYER-201011293BYL

PATIENT
  Age: 78 Year
  Sex: Male
  Weight: 47 kg

DRUGS (9)
  1. KATIV N [Concomitant]
     Route: 048
  2. URSO 250 [Concomitant]
     Route: 048
  3. AMLODIPINE [Concomitant]
     Route: 048
  4. NEXAVAR [Suspect]
     Dosage: 200 MG, BID
     Route: 048
     Dates: start: 20100213, end: 20100315
  5. FLUOROURACIL [Suspect]
     Indication: HEPATIC NEOPLASM MALIGNANT RECURRENT
     Dosage: 250 MG, UNK
     Route: 013
     Dates: start: 20100201
  6. INSULIN [Concomitant]
     Indication: DIABETES MELLITUS
     Dosage: UNK
     Dates: start: 19900101
  7. NEXAVAR [Suspect]
     Indication: HEPATIC NEOPLASM MALIGNANT RECURRENT
     Dosage: 400 MG, BID
     Route: 048
     Dates: start: 20100209, end: 20100312
  8. CISPLATIN [Suspect]
     Indication: HEPATIC NEOPLASM MALIGNANT RECURRENT
     Dosage: 10 MG, UNK
     Route: 013
     Dates: start: 20100201
  9. NEXAVAR [Suspect]
     Dosage: 200 MG, QD
     Route: 048
     Dates: start: 20100323

REACTIONS (1)
  - PANCYTOPENIA [None]
